FAERS Safety Report 6643334-2 (Version None)
Quarter: 2010Q1

REPORT INFORMATION
  Report Type: 
  Country: None (occurrence: None)
  Receive Date: 20100304
  Receipt Date: 20091028
  Transmission Date: 20100710
  Serious: Yes (Hospitalization)
  Sender: FDA-Public Use
  Company Number: US-003650

PATIENT
  Age: 56 Year
  Sex: Male

DRUGS (2)
  1. ISOVUE-300 [Suspect]
     Indication: ACUTE MYOCARDIAL INFARCTION
     Dosage: 50ML ONCE INTRACORONARY
     Route: 022
     Dates: start: 20091026, end: 20091026
  2. ISOVUE-300 [Suspect]
     Indication: CORONARY ARTERY DISEASE
     Dosage: 50ML ONCE INTRACORONARY
     Route: 022
     Dates: start: 20091026, end: 20091026

REACTIONS (1)
  - ARTERIOSPASM CORONARY [None]
